FAERS Safety Report 4663980-5 (Version None)
Quarter: 2005Q2

REPORT INFORMATION
  Report Type: 
  Country: None (occurrence: None)
  Receive Date: 20050502
  Receipt Date: 20050330
  Transmission Date: 20051028
  Serious: No
  Sender: FDA-Public Use
  Company Number: 200512590US

PATIENT
  Age: 47 Year
  Sex: Female

DRUGS (6)
  1. KETEK [Suspect]
     Indication: CHRONIC SINUSITIS
     Dosage: 800 MG QD PO
     Route: 048
     Dates: start: 20050120, end: 20050211
  2. PREDNISONE TAB [Concomitant]
  3. FLUTICASONE PROPIONATE, SALMETEROL XINAFOATE (ADVAIR) [Concomitant]
  4. PSEUDOEPHEDRINE HYDROCHLORIDE, CETIRIZINE HYDROCHLORIDE (ZYRTEC-D) [Concomitant]
  5. IMITREX [Concomitant]
  6. MOMETASONE FURONATE ( NASONEX ) [Concomitant]

REACTIONS (1)
  - TINNITUS [None]
